FAERS Safety Report 10695610 (Version 1)
Quarter: 2015Q1

REPORT INFORMATION
  Report Type: Spontaneous
  Country: US (occurrence: None)
  Receive Date: 20150106
  Receipt Date: 20150106
  Transmission Date: 20150721
  Serious: Yes (Life-Threatening, Hospitalization)
  Sender: FDA-Public Use
  Company Number: None

PATIENT
  Age: 54 Year
  Sex: Male
  Weight: 81.65 kg

DRUGS (1)
  1. HUMALOG [Suspect]
     Active Substance: INSULIN LISPRO
     Indication: BLOOD GLUCOSE ABNORMAL
     Dosage: SLIDING SCALER  INTO THE MUSCLE
     Dates: start: 20141201, end: 20150101

REACTIONS (3)
  - Product substitution issue [None]
  - Blood glucose decreased [None]
  - Seizure [None]

NARRATIVE: CASE EVENT DATE: 20150101
